FAERS Safety Report 21063124 (Version 1)
Quarter: 2022Q3

REPORT INFORMATION
  Report Type: Spontaneous
  Country: FR (occurrence: FR)
  Receive Date: 20220711
  Receipt Date: 20220711
  Transmission Date: 20221027
  Serious: Yes (Hospitalization, Other)
  Sender: FDA-Public Use
  Company Number: FR-AFSSAPS-MP20222157

PATIENT
  Age: 67 Year
  Sex: Male
  Weight: 76.6 kg

DRUGS (12)
  1. AMOXICILLIN [Suspect]
     Active Substance: AMOXICILLIN
     Indication: Streptococcal endocarditis
     Dosage: 6 GRAM, ONCE A DAY
     Route: 065
     Dates: start: 20220523, end: 20220604
  2. DAPTOMYCIN [Suspect]
     Active Substance: DAPTOMYCIN
     Indication: Streptococcal endocarditis
     Dosage: UNK
     Route: 065
     Dates: start: 20220502, end: 20220516
  3. GENTAMICIN [Suspect]
     Active Substance: GENTAMICIN
     Indication: Streptococcal endocarditis
     Dosage: UNK
     Route: 065
     Dates: start: 20220429, end: 20220502
  4. CEFTRIAXONE SODIUM [Suspect]
     Active Substance: CEFTRIAXONE SODIUM
     Indication: Streptococcal endocarditis
     Dosage: UNK
     Route: 065
     Dates: start: 20220429, end: 20220502
  5. CILASTATIN SODIUM\IMIPENEM [Suspect]
     Active Substance: CILASTATIN SODIUM\IMIPENEM
     Indication: Streptococcal endocarditis
     Dosage: UNK
     Route: 065
     Dates: start: 20220502, end: 20220523
  6. BISOPROLOL FUMARATE [Concomitant]
     Active Substance: BISOPROLOL FUMARATE
     Indication: Congestive cardiomyopathy
     Dosage: UNK
     Route: 065
  7. CORDARONE [Concomitant]
     Active Substance: AMIODARONE HYDROCHLORIDE
     Indication: Product used for unknown indication
     Dosage: UNK
     Route: 065
  8. INSPRA [Concomitant]
     Active Substance: EPLERENONE
     Indication: Congestive cardiomyopathy
     Dosage: UNK
     Route: 065
  9. CANDESARTAN CILEXETIL [Concomitant]
     Active Substance: CANDESARTAN CILEXETIL
     Indication: Hypertension
     Dosage: UNK
     Route: 065
     Dates: start: 202204
  10. FUROSEMIDE [Concomitant]
     Active Substance: FUROSEMIDE
     Indication: Congestive cardiomyopathy
     Dosage: UNK
     Route: 065
  11. Loxen [Concomitant]
     Indication: Hypertension
     Dosage: UNK
     Route: 065
  12. Previscan [Concomitant]
     Indication: Thrombosis prophylaxis
     Dosage: UNK
     Route: 065

REACTIONS (1)
  - Acute kidney injury [Recovering/Resolving]

NARRATIVE: CASE EVENT DATE: 20220531
